FAERS Safety Report 24908007 (Version 3)
Quarter: 2025Q1

REPORT INFORMATION
  Report Type: Spontaneous
  Country: US (occurrence: US)
  Receive Date: 20250131
  Receipt Date: 20250228
  Transmission Date: 20250409
  Serious: Yes (Other)
  Sender: NOVO NORDISK
  Company Number: US-NOVOPROD-1356088

PATIENT
  Age: 76 Year
  Sex: Male
  Weight: 124.73 kg

DRUGS (5)
  1. OZEMPIC [Suspect]
     Active Substance: SEMAGLUTIDE
     Route: 058
     Dates: start: 2023, end: 20250118
  2. OZEMPIC [Suspect]
     Active Substance: SEMAGLUTIDE
     Route: 058
  3. OZEMPIC [Suspect]
     Active Substance: SEMAGLUTIDE
     Indication: Type 2 diabetes mellitus
     Route: 058
     Dates: start: 2023
  4. OZEMPIC [Suspect]
     Active Substance: SEMAGLUTIDE
     Route: 058
  5. NOVOLOG [Suspect]
     Active Substance: INSULIN ASPART
     Indication: Type 2 diabetes mellitus
     Route: 058
     Dates: start: 2015

REACTIONS (5)
  - Macular degeneration [Recovering/Resolving]
  - Blindness [Not Recovered/Not Resolved]
  - Diabetic retinopathy [Recovering/Resolving]
  - Weight decreased [Unknown]
  - Nasopharyngitis [Recovered/Resolved]

NARRATIVE: CASE EVENT DATE: 20240901
